FAERS Safety Report 18117744 (Version 2)
Quarter: 2020Q4

REPORT INFORMATION
  Report Type: Report from Study
  Country: FR (occurrence: FR)
  Receive Date: 20200806
  Receipt Date: 20201116
  Transmission Date: 20210113
  Serious: Yes (Other)
  Sender: FDA-Public Use
  Company Number: NVSC2020FR211467

PATIENT
  Age: 69 Year
  Sex: Female
  Weight: 71 kg

DRUGS (5)
  1. DAUNORUBICIN [Concomitant]
     Active Substance: DAUNORUBICIN
     Indication: ACUTE MYELOID LEUKAEMIA
     Dosage: 99 MG/D
     Route: 042
     Dates: start: 20190202, end: 20190204
  2. HYDROXYCHLOROQUINE [Concomitant]
     Active Substance: HYDROXYCHLOROQUINE
     Indication: PRODUCT USED FOR UNKNOWN INDICATION
     Dosage: 400 MG/D
     Route: 048
     Dates: start: 20200709
  3. CYTARABINE. [Concomitant]
     Active Substance: CYTARABINE
     Indication: ACUTE MYELOID LEUKAEMIA
     Dosage: 165 MG/D
     Route: 042
     Dates: start: 20190202, end: 20190208
  4. LOMUSTINE. [Concomitant]
     Active Substance: LOMUSTINE
     Indication: ACUTE MYELOID LEUKAEMIA
     Dosage: 330 MG/D
     Route: 048
     Dates: start: 20190202, end: 20190202
  5. ELTROMBOPAG [Suspect]
     Active Substance: ELTROMBOPAG
     Indication: ACUTE MYELOID LEUKAEMIA
     Dosage: 200 MG/D
     Route: 048
     Dates: start: 20190212, end: 20190225

REACTIONS (1)
  - Immune thrombocytopenia [Not Recovered/Not Resolved]

NARRATIVE: CASE EVENT DATE: 201912
